FAERS Safety Report 6340669-8 (Version None)
Quarter: 2009Q3

REPORT INFORMATION
  Report Type: 
  Country: None (occurrence: None)
  Receive Date: 20090904
  Receipt Date: 20090828
  Transmission Date: 20100115
  Serious: Yes (Other)
  Sender: FDA-Public Use
  Company Number: US-WYE-H10759009

PATIENT

DRUGS (1)
  1. PRISTIQ [Suspect]
     Dosage: UNKNOWN

REACTIONS (1)
  - RHABDOMYOLYSIS [None]
